FAERS Safety Report 24267278 (Version 2)
Quarter: 2024Q3

REPORT INFORMATION
  Report Type: Spontaneous
  Country: ES (occurrence: ES)
  Receive Date: 20240830
  Receipt Date: 20240909
  Transmission Date: 20241016
  Serious: Yes (Other)
  Sender: RANBAXY
  Company Number: ES-SUN PHARMACEUTICAL INDUSTRIES LTD-2024R1-465071

PATIENT
  Age: 42 Year
  Sex: Female
  Weight: 65 kg

DRUGS (6)
  1. PREDNISONE [Suspect]
     Active Substance: PREDNISONE
     Indication: Pyrexia
     Dosage: UNK (30-60 MG/DAY)
     Route: 065
  2. PREDNISONE [Suspect]
     Active Substance: PREDNISONE
     Indication: Aphthous ulcer
  3. PREDNISONE [Suspect]
     Active Substance: PREDNISONE
     Indication: Pharyngitis
  4. PREDNISONE [Suspect]
     Active Substance: PREDNISONE
     Indication: Lymphadenitis
  5. COLCHICINE [Concomitant]
     Active Substance: COLCHICINE
     Indication: Pyrexia
     Dosage: 2 MILLIGRAM, DAILY
     Route: 065
  6. ANAKINRA [Concomitant]
     Active Substance: ANAKINRA
     Indication: Pyrexia
     Dosage: 100 MILLIGRAM, DAILY
     Route: 058

REACTIONS (2)
  - PFAPA syndrome [Recovered/Resolved]
  - Drug resistance [Unknown]
